FAERS Safety Report 7107596-X (Version None)
Quarter: 2010Q4

REPORT INFORMATION
  Report Type: 
  Country: None (occurrence: None)
  Receive Date: 20101117
  Receipt Date: 20080904
  Transmission Date: 20110411
  Serious: No
  Sender: FDA-Public Use
  Company Number: US-KINGPHARMUSA00001-K200801035

PATIENT
  Sex: Male
  Weight: 122.45 kg

DRUGS (6)
  1. ALTACE [Suspect]
     Dosage: 5 MG, QD
     Route: 048
     Dates: start: 20080601, end: 20080801
  2. FISH OIL [Concomitant]
     Dates: end: 20080801
  3. FOLIC ACID [Concomitant]
     Dates: end: 20080801
  4. ALLOPURINOL [Concomitant]
  5. LUTEIN SUPPLEMENT [Concomitant]
  6. MULTI-VITAMINS [Concomitant]
     Dosage: UNK, UNK

REACTIONS (3)
  - RASH PRURITIC [None]
  - SCAB [None]
  - SKIN DISCOLOURATION [None]
